FAERS Safety Report 8335888-5 (Version None)
Quarter: 2012Q2

REPORT INFORMATION
  Report Type: 
  Country: None (occurrence: None)
  Receive Date: 20120504
  Receipt Date: 20120501
  Transmission Date: 20120825
  Serious: No
  Sender: FDA-Public Use
  Company Number: US-PFIZER INC-2012107268

PATIENT
  Sex: Female

DRUGS (9)
  1. LEXAPRO [Suspect]
     Dosage: UNK
  2. PAXIL [Suspect]
     Dosage: UNK
  3. DURAGESIC-100 [Suspect]
     Dosage: UNK
  4. COMPAZINE [Suspect]
     Dosage: UNK
  5. CODEINE [Suspect]
     Dosage: UNK
  6. ZOLOFT [Suspect]
     Dosage: UNK
  7. DOXYCYCLINE HYCLATE [Suspect]
     Dosage: UNK
  8. TRAMADOL HYDROCHLORIDE [Suspect]
     Dosage: UNK
  9. DROPERIDOL [Suspect]
     Dosage: UNK

REACTIONS (1)
  - DRUG HYPERSENSITIVITY [None]
